FAERS Safety Report 8964223 (Version 1)
Quarter: 2012Q4

REPORT INFORMATION
  Report Type: 
  Country: US (occurrence: US)
  Receive Date: 20121214
  Receipt Date: 20121214
  Transmission Date: 20130627
  Serious: Yes (Hospitalization)
  Sender: FDA-Public Use
  Company Number: US-BAYER-2012-129925

PATIENT
  Age: 41 Year
  Sex: Female

DRUGS (5)
  1. YAZ [Suspect]
  2. LISINOPRIL [Concomitant]
     Dosage: 10 mg, daily
  3. FLUZONE [Concomitant]
  4. KEFLEX [Concomitant]
  5. NITROGLYCERIN [Concomitant]

REACTIONS (3)
  - Pulmonary embolism [Recovering/Resolving]
  - Deep vein thrombosis [Recovering/Resolving]
  - Myocardial infarction [None]
